FAERS Safety Report 24253769 (Version 3)
Quarter: 2024Q4

REPORT INFORMATION
  Report Type: Spontaneous
  Country: US (occurrence: US)
  Receive Date: 20240827
  Receipt Date: 20241003
  Transmission Date: 20250115
  Serious: Yes (Death, Hospitalization, Other)
  Sender: MERCK
  Company Number: US-009507513-2408USA007948

PATIENT
  Sex: Male

DRUGS (3)
  1. KEYTRUDA [Suspect]
     Active Substance: PEMBROLIZUMAB
     Indication: Malignant melanoma
     Dosage: 200 MILLIGRAM, Q3W
     Route: 042
     Dates: start: 20221102, end: 20221102
  2. KEYTRUDA [Suspect]
     Active Substance: PEMBROLIZUMAB
     Dosage: 200 MILLIGRAM, Q3W
     Route: 042
     Dates: start: 20221123, end: 20221123
  3. OFEV [Concomitant]
     Active Substance: NINTEDANIB
     Dosage: 150 MILLIGRAM, QD

REACTIONS (15)
  - Pulmonary fibrosis [Fatal]
  - Acute coronary syndrome [Fatal]
  - Coronary artery disease [Fatal]
  - Myopathy [Fatal]
  - Malignant neoplasm progression [Fatal]
  - Asthenia [Fatal]
  - Hospitalisation [Unknown]
  - Dermatochalasis [Unknown]
  - Back disorder [Unknown]
  - Oropharyngeal discomfort [Unknown]
  - Muscular weakness [Unknown]
  - Arthropathy [Unknown]
  - Musculoskeletal discomfort [Unknown]
  - Pruritus [Unknown]
  - Rash macular [Unknown]

NARRATIVE: CASE EVENT DATE: 20220101
